FAERS Safety Report 6460416-9 (Version None)
Quarter: 2009Q4

REPORT INFORMATION
  Report Type: 
  Country: None (occurrence: None)
  Receive Date: 20091130
  Receipt Date: 20091123
  Transmission Date: 20100525
  Serious: Yes (Hospitalization)
  Sender: FDA-Public Use
  Company Number: TW-ROCHE-653013

PATIENT
  Sex: Female
  Weight: 44 kg

DRUGS (3)
  1. CAPECITABINE [Suspect]
     Dosage: ROUTE-IVD, DOSAGE FORM: CAP, LAST DOSE PRIOR TO SAE: 02 NOVEMBER 2009.
     Route: 065
     Dates: start: 20090817, end: 20091116
  2. BEVACIZUMAB [Suspect]
     Dosage: FORM-VIAL, ROUTE-IVD, LAST DOSE PRIOR TO SAE: 19 OCTOBER 2009.
     Route: 041
     Dates: start: 20090817, end: 20091116
  3. OXALIPLATIN [Suspect]
     Dosage: FORM-VIAL, ROUTE-IVD, LAST DOSE PRIOR TO SAE: 02 NOVEMBER 2009.
     Route: 041
     Dates: start: 20090817, end: 20091116

REACTIONS (3)
  - ILEUS [None]
  - NEUTROPENIA [None]
  - THROMBOCYTOPENIA [None]
